FAERS Safety Report 7057258-2 (Version None)
Quarter: 2010Q4

REPORT INFORMATION
  Report Type: 
  Country: None (occurrence: None)
  Receive Date: 20101021
  Receipt Date: 20101021
  Transmission Date: 20110411
  Serious: No
  Sender: FDA-Public Use
  Company Number: None

PATIENT
  Age: 37 Year
  Sex: Male
  Weight: 62.1428 kg

DRUGS (1)
  1. TYLENOL PM ACETAMINOPHEN TYLENOL [Suspect]

REACTIONS (3)
  - MALAISE [None]
  - POOR QUALITY SLEEP [None]
  - RETCHING [None]
